FAERS Safety Report 26090687 (Version 1)
Quarter: 2025Q4

REPORT INFORMATION
  Report Type: Report from Study
  Country: PK (occurrence: PK)
  Receive Date: 20251126
  Receipt Date: 20251126
  Transmission Date: 20260119
  Serious: Yes (Other)
  Sender: ROCHE
  Company Number: PK-ROCHE-10000440463

PATIENT
  Age: 70 Year
  Sex: Female

DRUGS (1)
  1. AVASTIN [Suspect]
     Active Substance: BEVACIZUMAB
     Indication: Ovarian cancer
     Route: 042
     Dates: start: 20250616

REACTIONS (2)
  - Red blood cell count decreased [Unknown]
  - Drug intolerance [Unknown]

NARRATIVE: CASE EVENT DATE: 20251103
